FAERS Safety Report 13161826 (Version 2)
Quarter: 2017Q1

REPORT INFORMATION
  Report Type: Report from Study
  Country: IT (occurrence: IT)
  Receive Date: 20170130
  Receipt Date: 20170203
  Transmission Date: 20170428
  Serious: Yes (Death, Life-Threatening, Hospitalization, Other)
  Sender: FDA-Public Use
  Company Number: IT-AMGEN-ITANI2016020367

PATIENT
  Age: 57 Year
  Sex: Male

DRUGS (14)
  1. DEXAMETHASONE. [Concomitant]
     Active Substance: DEXAMETHASONE
     Dosage: 20 MG, QD
     Route: 042
     Dates: start: 20160120, end: 20160128
  2. TRIMETHOPRIM SULFAMETHOXAZOLE [Concomitant]
     Active Substance: SULFAMETHOXAZOLE\TRIMETHOPRIM
     Dosage: 60/400 MG
     Route: 042
     Dates: start: 20160117, end: 20160128
  3. METOPROLOL. [Concomitant]
     Active Substance: METOPROLOL
     Dosage: 50 MG, QD
     Route: 048
     Dates: start: 2010, end: 20160128
  4. PARACETAMOL [Concomitant]
     Active Substance: ACETAMINOPHEN
     Dosage: 5 MG/ 24 H
     Route: 042
     Dates: start: 20160117, end: 20160128
  5. ACICLOVIR [Concomitant]
     Active Substance: ACYCLOVIR
     Dosage: 250 MG, BID
     Route: 042
     Dates: start: 20160118, end: 20160127
  6. PANTOPRAZOLE [Concomitant]
     Active Substance: PANTOPRAZOLE SODIUM
     Dosage: 40 MG, QD
     Route: 042
     Dates: start: 20160117, end: 20160128
  7. MORPHINE [Concomitant]
     Active Substance: MORPHINE
     Dosage: 30 MG/ 24 H
     Route: 042
     Dates: start: 20160117, end: 20160122
  8. CARFILZOMIB [Suspect]
     Active Substance: CARFILZOMIB
     Indication: PLASMA CELL MYELOMA
     Dosage: 35 MG, ONCE DAILY
     Route: 042
     Dates: start: 201601, end: 201601
  9. CEFEPIME [Concomitant]
     Active Substance: CEFEPIME HYDROCHLORIDE
     Dosage: 2 G, BID
     Route: 042
     Dates: start: 20160117, end: 20160128
  10. DEXAMETHASONE. [Concomitant]
     Active Substance: DEXAMETHASONE
     Dosage: 8 MG, QD
     Route: 042
     Dates: start: 20160117, end: 20160127
  11. MIDAZOLAM [Concomitant]
     Active Substance: MIDAZOLAM HYDROCHLORIDE
     Dosage: 5 MG/24 H
     Route: 042
     Dates: start: 20160123, end: 20160127
  12. ALLOPURINOL. [Concomitant]
     Active Substance: ALLOPURINOL
     Dosage: 300 MG, QD
     Route: 048
     Dates: start: 20160119, end: 20160129
  13. RASBURICASE [Concomitant]
     Active Substance: RASBURICASE
     Dosage: 1.5 MG, QD
     Route: 042
     Dates: start: 20160127, end: 20160127
  14. ITRACONAZOLE. [Concomitant]
     Active Substance: ITRACONAZOLE
     Dosage: 2 SPOON BID
     Route: 048
     Dates: start: 20160123, end: 20160128

REACTIONS (3)
  - Respiratory failure [Not Recovered/Not Resolved]
  - Multiple organ dysfunction syndrome [Fatal]
  - Plasma cell leukaemia [Not Recovered/Not Resolved]

NARRATIVE: CASE EVENT DATE: 20160122
